FAERS Safety Report 4901444-1 (Version None)
Quarter: 2006Q1

REPORT INFORMATION
  Report Type: 
  Country: None (occurrence: None)
  Receive Date: 20060201
  Receipt Date: 20060201
  Transmission Date: 20060701
  Serious: Yes (Life-Threatening, Hospitalization)
  Sender: FDA-Public Use
  Company Number: None

PATIENT
  Sex: Male

DRUGS (2)
  1. ENOXAPARIN SODIUM [Suspect]
     Dosage: 100 MG  TWICE DAILY  SQ
     Route: 058
     Dates: start: 20050601, end: 20050711
  2. WARFARIN     5 MG [Suspect]
     Dosage: 5 MG   ONCE A DAY  PO
     Route: 048

REACTIONS (4)
  - CHEST PAIN [None]
  - EPISTAXIS [None]
  - RETROPERITONEAL HAEMATOMA [None]
  - WEIGHT DECREASED [None]
